FAERS Safety Report 8602080-6 (Version None)
Quarter: 2012Q3

REPORT INFORMATION
  Report Type: 
  Country: None (occurrence: None)
  Receive Date: 20120817
  Receipt Date: 20120813
  Transmission Date: 20120928
  Serious: Yes (Other)
  Sender: FDA-Public Use
  Company Number: US-PFIZER INC-2012197781

PATIENT
  Age: 69 Year
  Sex: Male
  Weight: 108.84 kg

DRUGS (4)
  1. ASPIRIN [Concomitant]
     Dosage: UNK, 1X/DAY
  2. LIPITOR [Suspect]
     Indication: BLOOD CHOLESTEROL INCREASED
     Dosage: 20 MG, 1X/DAY
     Route: 048
     Dates: start: 20020101, end: 20111231
  3. ATORVASTATIN CALCIUM [Suspect]
     Indication: BLOOD CHOLESTEROL INCREASED
     Dosage: 20 MG, 1X/DAY
     Route: 048
     Dates: start: 20120101, end: 20120813
  4. NAPROXEN [Concomitant]
     Dosage: UNK, 1X/DAY

REACTIONS (3)
  - CHONDROPATHY [None]
  - PAIN IN EXTREMITY [None]
  - SPINAL COLUMN STENOSIS [None]
